FAERS Safety Report 12262706 (Version 2)
Quarter: 2016Q2

REPORT INFORMATION
  Report Type: Spontaneous
  Country: US (occurrence: US)
  Receive Date: 20160413
  Receipt Date: 20160622
  Transmission Date: 20160815
  Serious: Yes (Death, Other)
  Sender: FDA-Public Use
  Company Number: US-PFIZER INC-2016196318

PATIENT
  Age: 74 Year
  Sex: Male
  Weight: 85.71 kg

DRUGS (6)
  1. SUTENT [Suspect]
     Active Substance: SUNITINIB MALATE
     Indication: RENAL CELL CARCINOMA
     Dosage: 37.5 UNK, CYCLIC (QD X 28 DAYS/14DAYS OFF)
     Route: 048
     Dates: start: 20150902, end: 20160317
  2. HALFPRIN LOW DOSE [Concomitant]
     Active Substance: ASPIRIN
     Dosage: 81 MG, 1X/DAY EVERY MORNING WITH BREAKFAST)
     Route: 048
  3. TENORMIN [Concomitant]
     Active Substance: ATENOLOL
     Dosage: 50 MG, DAILY
     Route: 048
  4. MEVACOR [Concomitant]
     Active Substance: LOVASTATIN
     Dosage: 20 MG, 1X/DAY (AT BEDTIME)
     Route: 048
  5. VITAMIN D3 [Concomitant]
     Active Substance: CHOLECALCIFEROL
     Dosage: 2000 DF, DAILY
     Route: 048
  6. PRINIVIL [Concomitant]
     Active Substance: LISINOPRIL
     Dosage: 10 MG, DAILY
     Route: 048

REACTIONS (5)
  - Acute respiratory failure [Fatal]
  - Bundle branch block [Recovering/Resolving]
  - Delusion [Unknown]
  - Blister [Unknown]
  - Stomatitis [Unknown]

NARRATIVE: CASE EVENT DATE: 201603
